FAERS Safety Report 16987124 (Version 2)
Quarter: 2020Q1

REPORT INFORMATION
  Report Type: Spontaneous
  Country: GR (occurrence: GR)
  Receive Date: 20191104
  Receipt Date: 20200114
  Transmission Date: 20200409
  Serious: Yes (Death, Other)
  Sender: FDA-Public Use
  Company Number: GR-AMGEN-GRCSP2019181373

PATIENT

DRUGS (7)
  1. BORTEZOMIB. [Concomitant]
     Active Substance: BORTEZOMIB
     Indication: PLASMA CELL MYELOMA
     Dosage: UNK
     Route: 065
  2. LENALIDOMIDE [Concomitant]
     Active Substance: LENALIDOMIDE
     Indication: PLASMA CELL MYELOMA
     Dosage: UNK
     Route: 065
  3. POMALIDOMIDE [Concomitant]
     Active Substance: POMALIDOMIDE
     Indication: PLASMA CELL MYELOMA
     Dosage: UNK
  4. CARFILZOMIB [Suspect]
     Active Substance: CARFILZOMIB
     Indication: PLASMA CELL MYELOMA
     Dosage: UNK
     Route: 065
  5. SELINEXOR [Suspect]
     Active Substance: SELINEXOR
     Indication: PLASMA CELL MYELOMA
     Dosage: 80 MILLIGRAM, Q2WK IN 4 WEEK CYCLES
     Route: 065
  6. DEXAMETHASONE. [Suspect]
     Active Substance: DEXAMETHASONE
     Indication: PLASMA CELL MYELOMA
     Dosage: 20 MILLIGRAM, Q2WK IN 4 WEEK CYCLES
     Route: 065
  7. DARATUMUMAB [Concomitant]
     Active Substance: DARATUMUMAB
     Indication: PLASMA CELL MYELOMA
     Dosage: UNK
     Route: 065

REACTIONS (11)
  - Leukopenia [Unknown]
  - Fatigue [Unknown]
  - Asthenia [Unknown]
  - Hyponatraemia [Unknown]
  - Pneumonia [Fatal]
  - Thrombocytopenia [Unknown]
  - Lymphopenia [Unknown]
  - Sepsis [Fatal]
  - Anaemia [Unknown]
  - Therapy non-responder [Unknown]
  - Neutropenia [Unknown]
